FAERS Safety Report 6694109-X (Version None)
Quarter: 2010Q2

REPORT INFORMATION
  Report Type: 
  Country: None (occurrence: None)
  Receive Date: 20100423
  Receipt Date: 20100413
  Transmission Date: 20101027
  Serious: Yes (Hospitalization)
  Sender: FDA-Public Use
  Company Number: CA-ROCHE-656867

PATIENT
  Sex: Male
  Weight: 86.7 kg

DRUGS (3)
  1. BEVACIZUMAB [Suspect]
     Indication: RECTAL CANCER
     Dosage: FORM: LIQUID. FREQUENCY: DAY 14, 1, 15 AND 29.  LAST DOSE PRIOR TO SAE: 24 JUNE 2009.
     Route: 042
     Dates: start: 20090513
  2. CAPECITABINE [Suspect]
     Indication: RECTAL CANCER
     Dosage: LAST DOSE PRIOR TO SAE: 30 JUNE 2009.
     Route: 048
     Dates: start: 20090527
  3. OXALIPLATIN [Suspect]
     Indication: RECTAL CANCER
     Dosage: LAST DOSE PRIOR TO SAE: 24 JUNE 2009.FREQ: DAY 1, 8, 22, 29, FORM:LIQUID
     Route: 042
     Dates: start: 20090527

REACTIONS (1)
  - GASTROINTESTINAL ANASTOMOTIC LEAK [None]
